FAERS Safety Report 23465035 (Version 1)
Quarter: 2024Q1

REPORT INFORMATION
  Report Type: Spontaneous
  Country: US (occurrence: US)
  Receive Date: 20240201
  Receipt Date: 20240201
  Transmission Date: 20240409
  Serious: No
  Sender: FDA-Public Use
  Company Number: US-PERRIGO-23US013087

PATIENT
  Age: 82 Year
  Sex: Female

DRUGS (24)
  1. OMEPRAZOLE [Suspect]
     Active Substance: OMEPRAZOLE
     Indication: Infectious mononucleosis
     Dosage: 20 MG, QD IN AM
     Route: 048
     Dates: start: 20230930, end: 20231031
  2. ACETAMINOPHEN [Suspect]
     Active Substance: ACETAMINOPHEN
     Indication: Malaise
     Dosage: 500 TO 1000 MG, QD PRN
     Route: 048
     Dates: start: 20230913, end: 20231030
  3. VITAMIN D NOS [Concomitant]
     Active Substance: VITAMIN D NOS
     Indication: Infectious mononucleosis
     Dosage: 10000 IU, QOD
     Route: 065
     Dates: start: 2023
  4. VITAMIN D NOS [Concomitant]
     Active Substance: VITAMIN D NOS
     Dosage: 40000 IU, QD
     Route: 065
     Dates: start: 20231013, end: 20231027
  5. FLAXSEED [Concomitant]
     Active Substance: FLAX SEED
     Indication: Cerebrovascular accident
     Dosage: 1000 MG
     Route: 065
     Dates: start: 20231023
  6. FLAXSEED [Concomitant]
     Active Substance: FLAX SEED
     Dosage: 1000 MG
     Route: 065
     Dates: end: 20230913
  7. FISH OIL [Concomitant]
     Active Substance: FISH OIL
     Indication: Cerebrovascular accident
     Dosage: UNK
     Route: 065
     Dates: start: 20231023
  8. FISH OIL [Concomitant]
     Active Substance: FISH OIL
     Dosage: UNK
     Route: 065
     Dates: end: 20230913
  9. VITAMIN C [Concomitant]
     Active Substance: ASCORBIC ACID
     Indication: Prophylaxis
     Dosage: 1000 MG
     Route: 065
     Dates: start: 20231023
  10. VITAMIN C [Concomitant]
     Active Substance: ASCORBIC ACID
     Dosage: 1000 MG
     Route: 065
     Dates: end: 20230913
  11. POTASSIUM GLUCONATE [Concomitant]
     Active Substance: POTASSIUM GLUCONATE
     Indication: Product used for unknown indication
     Dosage: 650 MG
     Route: 065
     Dates: start: 20231023
  12. POTASSIUM GLUCONATE [Concomitant]
     Active Substance: POTASSIUM GLUCONATE
     Dosage: 650 MG
     Route: 065
     Dates: end: 20230913
  13. BIOTIN [Concomitant]
     Active Substance: BIOTIN
     Indication: Product used for unknown indication
     Dosage: 5000 MCG
     Route: 065
     Dates: start: 20231023
  14. BIOTIN [Concomitant]
     Active Substance: BIOTIN
     Dosage: 5000 MCG
     Route: 065
     Dates: end: 20230913
  15. IRON [Concomitant]
     Active Substance: IRON
     Indication: Supplementation therapy
     Dosage: UNK
     Route: 065
     Dates: start: 20231023
  16. IRON [Concomitant]
     Active Substance: IRON
     Dosage: UNK
     Route: 065
     Dates: end: 20230913
  17. RELAFEN [Concomitant]
     Active Substance: NABUMETONE
     Indication: Pain
     Dosage: UNK
     Route: 065
  18. MAGNESIUM [Concomitant]
     Active Substance: MAGNESIUM
     Indication: Muscle spasms
     Dosage: UNK
     Route: 065
     Dates: start: 20231023
  19. MAGNESIUM [Concomitant]
     Active Substance: MAGNESIUM
     Dosage: UNK
     Route: 065
     Dates: end: 20230913
  20. LUTEIN [Concomitant]
     Active Substance: LUTEIN
     Indication: Supplementation therapy
     Dosage: UNK
     Route: 065
     Dates: start: 20231023
  21. LUTEIN [Concomitant]
     Active Substance: LUTEIN
     Dosage: UNK
     Route: 065
     Dates: end: 20230913
  22. GLUCOSAMINE [Concomitant]
     Active Substance: GLUCOSAMINE
     Indication: Pain in extremity
     Dosage: UNK
     Route: 065
     Dates: start: 20231023
  23. GLUCOSAMINE [Concomitant]
     Active Substance: GLUCOSAMINE
     Dosage: UNK
     Route: 065
     Dates: start: 2003, end: 20230913
  24. COPPER [Concomitant]
     Active Substance: COPPER
     Indication: Prophylaxis
     Dosage: UNK
     Route: 065

REACTIONS (3)
  - Malaise [Not Recovered/Not Resolved]
  - Drug ineffective for unapproved indication [Unknown]
  - Incorrect product administration duration [Unknown]

NARRATIVE: CASE EVENT DATE: 20230930
